FAERS Safety Report 25311221 (Version 1)
Quarter: 2025Q2

REPORT INFORMATION
  Report Type: Spontaneous
  Country: US (occurrence: US)
  Receive Date: 20250514
  Receipt Date: 20250514
  Transmission Date: 20250717
  Serious: No
  Sender: ROCHE
  Company Number: US-ROCHE-10000281205

PATIENT
  Age: 36 Year
  Sex: Female

DRUGS (1)
  1. OCREVUS [Suspect]
     Active Substance: OCRELIZUMAB
     Indication: Multiple sclerosis relapse
     Route: 042
     Dates: start: 201806

REACTIONS (6)
  - Headache [Unknown]
  - Insomnia [Unknown]
  - Anxiety [Unknown]
  - Migraine [Unknown]
  - Brain fog [Unknown]
  - Neck pain [Unknown]
